FAERS Safety Report 10202546 (Version 1)
Quarter: 2014Q2

REPORT INFORMATION
  Report Type: Spontaneous
  Country: US (occurrence: US)
  Receive Date: 20140528
  Receipt Date: 20140528
  Transmission Date: 20141212
  Serious: Yes (Hospitalization, Other)
  Sender: FDA-Public Use
  Company Number: US-B.I. PHARMACEUTICALS,INC./RIDGEFIELD-2014-BI-22933BP

PATIENT
  Age: 83 Year
  Sex: Male

DRUGS (4)
  1. PRADAXA [Suspect]
     Indication: CEREBROVASCULAR ACCIDENT PROPHYLAXIS
     Dosage: 300 MG
     Route: 048
     Dates: start: 2011, end: 20140430
  2. PRADAXA [Suspect]
     Indication: ATRIAL FIBRILLATION
     Dosage: 300 MG
     Route: 048
     Dates: start: 20140505
  3. MULTAQ [Concomitant]
     Indication: CEREBROVASCULAR ACCIDENT PROPHYLAXIS
     Dosage: 800 MG
     Route: 048
     Dates: start: 2011, end: 20140505
  4. MULTAQ [Concomitant]
     Indication: ATRIAL FIBRILLATION

REACTIONS (3)
  - Transient ischaemic attack [Recovered/Resolved with Sequelae]
  - Transient ischaemic attack [Recovered/Resolved]
  - Mobility decreased [Not Recovered/Not Resolved]
